FAERS Safety Report 10920745 (Version 3)
Quarter: 2016Q1

REPORT INFORMATION
  Report Type: Report from Study
  Country: CA (occurrence: CA)
  Receive Date: 20150317
  Receipt Date: 20160114
  Transmission Date: 20160525
  Serious: Yes (Other)
  Sender: FDA-Public Use
  Company Number: CA-JNJFOC-20150307870

PATIENT
  Age: 64 Year
  Sex: Female
  Weight: 68.95 kg

DRUGS (4)
  1. ACETAMINOPHEN. [Concomitant]
     Active Substance: ACETAMINOPHEN
     Indication: PREMEDICATION
     Route: 048
     Dates: start: 20140113
  2. REMICADE [Suspect]
     Active Substance: INFLIXIMAB
     Indication: CROHN^S DISEASE
     Dosage: APPROXIMATE TOTAL NUMBER OF INFUSIONS PATIENT RECEIVED 11
     Route: 042
     Dates: start: 20140113, end: 20150123
  3. BENADRYL [Concomitant]
     Active Substance: DIPHENHYDRAMINE HYDROCHLORIDE
     Indication: PREMEDICATION
     Route: 048
     Dates: start: 20140113
  4. REMICADE [Suspect]
     Active Substance: INFLIXIMAB
     Indication: CROHN^S DISEASE
     Dosage: APPROXIMATE TOTAL NUMBER OF INFUSIONS PATIENT RECEIVED 11
     Route: 042
     Dates: start: 20150306, end: 20150306

REACTIONS (6)
  - Infusion related reaction [Recovered/Resolved]
  - Back pain [Recovered/Resolved]
  - Lupus-like syndrome [Unknown]
  - Chest pain [Recovered/Resolved]
  - Arthralgia [Recovered/Resolved]
  - Myalgia [Recovered/Resolved]

NARRATIVE: CASE EVENT DATE: 20150306
